FAERS Safety Report 5520314-1 (Version None)
Quarter: 2007Q4

REPORT INFORMATION
  Report Type: 
  Country: None (occurrence: None)
  Receive Date: 20071119
  Receipt Date: 20071108
  Transmission Date: 20080405
  Serious: Yes (Hospitalization)
  Sender: FDA-Public Use
  Company Number: US-JNJFOC-20071000682

PATIENT
  Sex: Male
  Weight: 56.7 kg

DRUGS (6)
  1. TMC114 [Suspect]
     Route: 048
  2. TMC114 [Suspect]
     Indication: HIV INFECTION
     Dosage: PERMANENT STOP
     Route: 048
  3. NORVIR [Suspect]
     Indication: HIV INFECTION
     Route: 048
  4. VIDEX [Suspect]
     Indication: HIV INFECTION
     Route: 048
  5. EPZICOM [Suspect]
     Indication: HIV INFECTION
     Route: 048
  6. FUZEON [Suspect]
     Indication: HIV INFECTION
     Route: 058

REACTIONS (2)
  - NAUSEA [None]
  - PANCREATITIS [None]
